FAERS Safety Report 21450012 (Version 2)
Quarter: 2022Q4

REPORT INFORMATION
  Report Type: Spontaneous
  Country: JP (occurrence: JP)
  Receive Date: 20221013
  Receipt Date: 20221017
  Transmission Date: 20230113
  Serious: Yes (Death, Life-Threatening, Hospitalization, Other)
  Sender: FDA-Public Use
  Company Number: JP-Accord-278669

PATIENT
  Age: 78 Year
  Sex: Male

DRUGS (1)
  1. TACROLIMUS [Suspect]
     Active Substance: TACROLIMUS
     Indication: Rheumatoid arthritis

REACTIONS (5)
  - Lymphoproliferative disorder [Fatal]
  - Central nervous system lymphoma [Fatal]
  - Metastases to meninges [Fatal]
  - Plasmacytoma [Fatal]
  - Tumour haemorrhage [Fatal]
